FAERS Safety Report 14004312 (Version 1)
Quarter: 2017Q3

REPORT INFORMATION
  Report Type: Spontaneous
  Country: US (occurrence: US)
  Receive Date: 20170922
  Receipt Date: 20170922
  Transmission Date: 20171128
  Serious: No
  Sender: FDA-Public Use
  Company Number: US-JNJFOC-20170802067

PATIENT
  Sex: Female
  Weight: 87.09 kg

DRUGS (7)
  1. VICTOZA [Concomitant]
     Active Substance: LIRAGLUTIDE
     Route: 065
     Dates: start: 201701
  2. LISINOPRIL. [Concomitant]
     Active Substance: LISINOPRIL
     Indication: HYPERTENSION
     Route: 065
     Dates: start: 2014
  3. INVOKANA [Suspect]
     Active Substance: CANAGLIFLOZIN
     Indication: TYPE 2 DIABETES MELLITUS
     Route: 065
     Dates: start: 201701
  4. CLONIDINE. [Concomitant]
     Active Substance: CLONIDINE
     Indication: HYPERTENSION
     Route: 065
     Dates: start: 2014
  5. GLIMEPIRIDE. [Concomitant]
     Active Substance: GLIMEPIRIDE
     Indication: TYPE 2 DIABETES MELLITUS
     Route: 065
  6. METFORMIN [Concomitant]
     Active Substance: METFORMIN HYDROCHLORIDE
     Indication: TYPE 2 DIABETES MELLITUS
     Route: 065
  7. TRULICITY [Concomitant]
     Active Substance: DULAGLUTIDE
     Indication: TYPE 2 DIABETES MELLITUS
     Route: 065
     Dates: start: 201707

REACTIONS (1)
  - Menstrual disorder [Not Recovered/Not Resolved]

NARRATIVE: CASE EVENT DATE: 2017
